FAERS Safety Report 18515489 (Version 6)
Quarter: 2022Q2

REPORT INFORMATION
  Report Type: Spontaneous
  Country: GB (occurrence: GB)
  Receive Date: 20201118
  Receipt Date: 20220613
  Transmission Date: 20220720
  Serious: Yes (Other)
  Sender: FDA-Public Use
  Company Number: GB-VIIV HEALTHCARE ULC-GB2020EME212616

PATIENT

DRUGS (19)
  1. COBICISTAT\DARUNAVIR ETHANOLATE [Suspect]
     Active Substance: COBICISTAT\DARUNAVIR ETHANOLATE
     Indication: HIV infection
     Dosage: UNK
     Route: 048
  2. EDURANT [Suspect]
     Active Substance: RILPIVIRINE HYDROCHLORIDE
     Indication: HIV infection
     Dosage: UNK
     Route: 065
  3. RITONAVIR [Suspect]
     Active Substance: RITONAVIR
     Indication: HIV infection
     Dosage: UNK UNK, QD
     Route: 065
  4. RITONAVIR [Suspect]
     Active Substance: RITONAVIR
     Dosage: 1 DF, QD
     Route: 065
  5. RITONAVIR [Suspect]
     Active Substance: RITONAVIR
     Dosage: UNK UNK, QD
     Route: 065
  6. RITONAVIR [Suspect]
     Active Substance: RITONAVIR
     Dosage: UNK UNK, QD
     Route: 065
  7. KALETRA [Suspect]
     Active Substance: LOPINAVIR\RITONAVIR
     Indication: HIV infection
     Dosage: UNK
     Route: 065
  8. ABACAVIR SULFATE\LAMIVUDINE\ZIDOVUDINE [Suspect]
     Active Substance: ABACAVIR SULFATE\LAMIVUDINE\ZIDOVUDINE
     Indication: HIV infection
     Dosage: UNK
     Route: 065
  9. COMBIVIR [Suspect]
     Active Substance: LAMIVUDINE\ZIDOVUDINE
     Indication: HIV infection
     Dosage: UNK,245
     Route: 065
  10. TRIUMEQ [Suspect]
     Active Substance: ABACAVIR SULFATE\DOLUTEGRAVIR SODIUM\LAMIVUDINE
     Indication: HIV infection
     Dosage: UNK
     Route: 065
  11. COBICISTAT [Suspect]
     Active Substance: COBICISTAT
     Indication: HIV infection
     Dosage: UNK,245
     Route: 065
  12. COBICISTAT [Suspect]
     Active Substance: COBICISTAT
     Dosage: UNK
     Route: 065
  13. COBICISTAT [Suspect]
     Active Substance: COBICISTAT
     Dosage: UNK,245
     Route: 065
  14. LAMIVUDINE [Suspect]
     Active Substance: LAMIVUDINE
     Indication: Product used for unknown indication
     Dosage: UNK
     Route: 065
  15. LAMIVUDINE [Suspect]
     Active Substance: LAMIVUDINE
     Dosage: UNK
     Route: 065
  16. KALETRA [Suspect]
     Active Substance: LOPINAVIR\RITONAVIR
     Indication: HIV infection
     Route: 065
  17. TYBOST [Suspect]
     Active Substance: COBICISTAT
     Indication: HIV infection
     Route: 065
  18. ZIDOVUDINE [Suspect]
     Active Substance: ZIDOVUDINE
     Indication: HIV infection
     Dosage: UNK
     Route: 065
  19. ZIDOVUDINE [Suspect]
     Active Substance: ZIDOVUDINE
     Route: 065

REACTIONS (10)
  - Neuropathy peripheral [Unknown]
  - Lipoedema [Unknown]
  - Nerve injury [Unknown]
  - Memory impairment [Unknown]
  - Skin discolouration [Unknown]
  - Nail discolouration [Unknown]
  - Somnolence [Unknown]
  - Lip discolouration [Unknown]
  - Low density lipoprotein increased [Unknown]
  - Lipodystrophy acquired [Unknown]
